FAERS Safety Report 10033121 (Version 2)
Quarter: 2014Q2

REPORT INFORMATION
  Report Type: Spontaneous
  Country: US (occurrence: US)
  Receive Date: 20140324
  Receipt Date: 20140515
  Transmission Date: 20141212
  Serious: Yes (Other)
  Sender: FDA-Public Use
  Company Number: US-ENDO PHARMACEUTICALS INC.-ENDC20140007

PATIENT
  Sex: Male

DRUGS (1)
  1. ENDOCET 10MG/325MG [Suspect]
     Indication: PRODUCT USED FOR UNKNOWN INDICATION
     Dosage: 10/325 MG
     Route: 048

REACTIONS (5)
  - Septic shock [Unknown]
  - Renal failure [Unknown]
  - Adverse event [Unknown]
  - Incorrect product storage [Unknown]
  - Drug dispensing error [Recovered/Resolved]
